FAERS Safety Report 9194237 (Version 1)
Quarter: 2013Q1

REPORT INFORMATION
  Report Type: Spontaneous
  Country: GB (occurrence: GB)
  Receive Date: 20130327
  Receipt Date: 20130327
  Transmission Date: 20140127
  Serious: Yes (Other)
  Sender: FDA-Public Use
  Company Number: PHHY2013GB027742

PATIENT
  Age: 56 Year
  Sex: Female
  Weight: 74 kg

DRUGS (8)
  1. LOSARTAN [Suspect]
     Indication: HYPERTENSION
     Dosage: 50 MG, QD
     Route: 048
     Dates: start: 20121107, end: 20121121
  2. CO-CODAMOL [Concomitant]
     Indication: OSTEOARTHRITIS
     Route: 048
  3. SERETIDE [Concomitant]
     Indication: ASTHMA
     Dosage: 2 DF, BID
     Route: 055
  4. GAVISCON [Concomitant]
     Indication: DYSPEPSIA
     Dosage: 10 ML,
     Route: 048
  5. GLICLAZIDE [Concomitant]
     Indication: DIABETES MELLITUS
     Dosage: 160 MG, BID
     Route: 048
  6. METFORMIN [Concomitant]
     Indication: DIABETES MELLITUS
     Dosage: 850 MG, TID
     Route: 048
  7. OMEPRAZOLE [Concomitant]
     Indication: DYSPEPSIA
     Dosage: 20 MG, BID
     Route: 048
  8. SALBUTAMOL [Concomitant]
     Indication: ASTHMA
     Dosage: 2 DF PUFFS AS REQUIRED.
     Route: 055

REACTIONS (2)
  - Crying [Recovered/Resolved]
  - Depressed mood [Recovered/Resolved]
